FAERS Safety Report 25487353 (Version 1)
Quarter: 2025Q2

REPORT INFORMATION
  Report Type: Spontaneous
  Country: US (occurrence: US)
  Receive Date: 20250627
  Receipt Date: 20250627
  Transmission Date: 20250716
  Serious: No
  Sender: FDC LIMITED
  Company Number: US-FDC-2025USSPO00271

PATIENT
  Sex: Male

DRUGS (1)
  1. TIMOLOL MALEATE [Suspect]
     Active Substance: TIMOLOL MALEATE
     Indication: Product used for unknown indication
     Route: 047

REACTIONS (4)
  - Eye irritation [Unknown]
  - Eye pain [Unknown]
  - Headache [Unknown]
  - Diarrhoea [Unknown]
